FAERS Safety Report 9265504 (Version 3)
Quarter: 2014Q1

REPORT INFORMATION
  Report Type: Spontaneous
  Country: US (occurrence: US)
  Receive Date: 20130501
  Receipt Date: 20140326
  Transmission Date: 20141002
  Serious: Yes (Other)
  Sender: FDA-Public Use
  Company Number: US-PFIZER INC-2013131843

PATIENT
  Sex: Female

DRUGS (2)
  1. LEVOXYL [Suspect]
     Indication: AUTOIMMUNE THYROIDITIS
     Dosage: 100 UG, CYCLIC (ONCE A DAY ON MONDAY AND FRIDAY)
     Route: 048
     Dates: start: 200806, end: 201303
  2. LEVOXYL [Suspect]
     Dosage: 125 UG, CYCLIC (ONCE A DAY ON THE REMAINING DAYS OF THE WEEK)
     Route: 048
     Dates: start: 200806, end: 201303

REACTIONS (2)
  - Hyperthyroidism [Unknown]
  - Malaise [Unknown]
